FAERS Safety Report 8563990-1 (Version None)
Quarter: 2012Q3

REPORT INFORMATION
  Report Type: 
  Country: None (occurrence: None)
  Receive Date: 20120803
  Receipt Date: 20120731
  Transmission Date: 20120928
  Serious: Yes (Death)
  Sender: FDA-Public Use
  Company Number: PHHY2012JP066591

PATIENT
  Age: 90 Year
  Sex: Female

DRUGS (2)
  1. RISPERDAL [Concomitant]
     Route: 048
  2. EXELON [Suspect]
     Indication: DEMENTIA ALZHEIMER'S TYPE
     Dosage: 13.5 MG, DAILY
     Route: 062
     Dates: start: 20120223

REACTIONS (2)
  - PORIOMANIA [None]
  - HYPOTHERMIA [None]
